FAERS Safety Report 8254738-9 (Version None)
Quarter: 2012Q2

REPORT INFORMATION
  Report Type: 
  Country: None (occurrence: None)
  Receive Date: 20120403
  Receipt Date: 20120323
  Transmission Date: 20120825
  Serious: Yes (Other)
  Sender: FDA-Public Use
  Company Number: PHHY2012FI007541

PATIENT
  Sex: Male

DRUGS (4)
  1. CLOZAPINE [Suspect]
     Dosage: 300 MG, PER DAY
  2. CLOZAPINE [Suspect]
     Indication: PSYCHOTIC DISORDER
     Dosage: 350 MG/DAY
     Dates: start: 20110801
  3. ZYPREXA [Suspect]
     Dosage: UNK UKN, UNK
     Dates: start: 20110101
  4. SERONIL [Concomitant]

REACTIONS (1)
  - OCULOGYRIC CRISIS [None]
